FAERS Safety Report 7814934-9 (Version None)
Quarter: 2011Q4

REPORT INFORMATION
  Report Type: 
  Country: None (occurrence: None)
  Receive Date: 20111014
  Receipt Date: 20110930
  Transmission Date: 20120403
  Serious: Yes (Hospitalization, Other)
  Sender: FDA-Public Use
  Company Number: US-BAYER-201015558NA

PATIENT
  Age: 19 Year
  Sex: Female
  Weight: 86.168 kg

DRUGS (11)
  1. YASMIN [Suspect]
     Indication: MENSTRUAL CYCLE MANAGEMENT
     Dosage: UNK
     Dates: start: 20040101, end: 20080520
  2. CIPROFLOXACIN [Concomitant]
  3. YAZ [Suspect]
     Indication: CONTRACEPTION
  4. YAZ [Suspect]
     Indication: MENSTRUAL CYCLE MANAGEMENT
     Dosage: UNK
     Dates: start: 20040101, end: 20080520
  5. ACETAMINOPHEN W/ PROPOXYPHENE HCL [Concomitant]
  6. YASMIN [Suspect]
     Indication: CONTRACEPTION
  7. DROSPIRENONE AND ETHINYL ESTRADIOL [Suspect]
     Indication: CONTRACEPTION
     Dosage: UNK
     Dates: start: 20040101, end: 20080520
  8. ASCORBIC ACID [Concomitant]
  9. IBUPROFEN [Concomitant]
     Indication: RADICULITIS CERVICAL
     Dosage: 800 MG, BID
     Route: 048
     Dates: start: 20080215
  10. MULTI-VITAMINS [Concomitant]
  11. ULTRAM [Concomitant]
     Indication: PAIN
     Dosage: 50 MG, Q4HR
     Route: 048
     Dates: start: 20080215

REACTIONS (14)
  - ABDOMINAL PAIN UPPER [None]
  - BACK PAIN [None]
  - GASTROOESOPHAGEAL REFLUX DISEASE [None]
  - CHOLESTEROSIS [None]
  - CHOLECYSTITIS CHRONIC [None]
  - CHEST PAIN [None]
  - PAIN [None]
  - NAUSEA [None]
  - EMOTIONAL DISORDER [None]
  - VOMITING [None]
  - GALLBLADDER DISORDER [None]
  - DYSPEPSIA [None]
  - MENTAL DISORDER [None]
  - INJURY [None]
